FAERS Safety Report 8137387-2 (Version None)
Quarter: 2012Q1

REPORT INFORMATION
  Report Type: 
  Country: None (occurrence: None)
  Receive Date: 20120210
  Receipt Date: 20120130
  Transmission Date: 20120608
  Serious: Yes (Other)
  Sender: FDA-Public Use
  Company Number: 1000028052

PATIENT
  Age: 84 Year
  Sex: Female
  Weight: 48 kg

DRUGS (4)
  1. ESCITALOPRAM OXALATE [Suspect]
     Indication: DEPRESSION
     Dosage: 10 MG (10 MG,1 IN 1 D),ORAL
     Route: 048
  2. BIPRETERAX (PERINDOPRIL) (PERINDOPRIL) [Concomitant]
  3. ESCITALOPRAM OXALATE [Suspect]
     Indication: DEPRESSION
     Dosage: SEE IMAGE
     Route: 048
  4. ESCITALOPRAM OXALATE [Suspect]
     Indication: DEPRESSION
     Dosage: 40 MG (40 MG,1 IN 1 D),ORAL
     Route: 048
     Dates: start: 20110706, end: 20110801

REACTIONS (6)
  - ANXIETY [None]
  - DELIRIUM [None]
  - CONFUSIONAL STATE [None]
  - DEPRESSION [None]
  - SUDDEN ONSET OF SLEEP [None]
  - WEIGHT DECREASED [None]
